FAERS Safety Report 9868600 (Version 2)
Quarter: 2014Q1

REPORT INFORMATION
  Report Type: Spontaneous
  Country: US (occurrence: US)
  Receive Date: 20140204
  Receipt Date: 20140320
  Transmission Date: 20141002
  Serious: No
  Sender: FDA-Public Use
  Company Number: US-PFIZER INC-2014028379

PATIENT
  Age: 48 Year
  Sex: Female
  Weight: 64.4 kg

DRUGS (1)
  1. EFFEXOR XR [Suspect]
     Indication: MENOPAUSAL SYMPTOMS
     Dosage: 37.5 MG, DAILY
     Route: 048
     Dates: start: 201308

REACTIONS (5)
  - Impaired work ability [Recovered/Resolved]
  - Drug withdrawal syndrome [Unknown]
  - Malaise [Unknown]
  - Drug effect increased [Unknown]
  - Off label use [Not Recovered/Not Resolved]
